FAERS Safety Report 4888588-8 (Version None)
Quarter: 2005Q4

REPORT INFORMATION
  Report Type: 
  Country: None (occurrence: None)
  Receive Date: 20051215
  Receipt Date: 20050801
  Transmission Date: 20060501
  Serious: Yes (Other)
  Sender: FDA-Public Use
  Company Number: 2005110401

PATIENT
  Sex: Male
  Weight: 81.6475 kg

DRUGS (3)
  1. BEXTRA [Suspect]
     Indication: INFLAMMATION
     Dosage: (1 IN 1 D), ORAL
     Route: 048
  2. IBUPROFEN [Suspect]
     Indication: ILL-DEFINED DISORDER
  3. ALKA-SELTZER (ACETYLSALICYLIC ACID, CITRIC ACID, SODIUM BICARBONATE) [Suspect]
     Indication: ILL-DEFINED DISORDER

REACTIONS (5)
  - DYSPNOEA [None]
  - HYPERSENSITIVITY [None]
  - LOSS OF CONSCIOUSNESS [None]
  - RASH [None]
  - SWELLING [None]
